FAERS Safety Report 15702353 (Version 1)
Quarter: 2018Q4

REPORT INFORMATION
  Report Type: Spontaneous
  Country: GB (occurrence: GB)
  Receive Date: 20181210
  Receipt Date: 20181210
  Transmission Date: 20190205
  Serious: Yes (Life-Threatening, Hospitalization, Disabling, Other)
  Sender: FDA-Public Use
  Company Number: GB-SUN PHARMACEUTICAL INDUSTRIES LTD-2018RR-193000

PATIENT
  Age: 36 Year
  Sex: Female
  Weight: 60 kg

DRUGS (3)
  1. SERTRALINE [Suspect]
     Active Substance: SERTRALINE HYDROCHLORIDE
     Dosage: 25 MILLIGRAM
     Route: 048
     Dates: start: 201805
  2. SERTRALINE [Suspect]
     Active Substance: SERTRALINE HYDROCHLORIDE
     Indication: DEPRESSION
     Dosage: 112.5 MILLIGRAM
     Route: 048
     Dates: end: 201810
  3. LEVOTHYROXINE. [Concomitant]
     Active Substance: LEVOTHYROXINE
     Indication: THYROIDECTOMY
     Dosage: UNK
     Route: 065

REACTIONS (11)
  - Aggression [Recovering/Resolving]
  - Somnolence [Recovered/Resolved]
  - Intentional self-injury [Recovering/Resolving]
  - Suicidal ideation [Recovering/Resolving]
  - Dry mouth [Recovered/Resolved]
  - Affect lability [Not Recovered/Not Resolved]
  - Indifference [Unknown]
  - Abnormal loss of weight [Recovered/Resolved]
  - Malaise [Recovered/Resolved]
  - Anger [Recovering/Resolving]
  - Intentional overdose [Recovered/Resolved]

NARRATIVE: CASE EVENT DATE: 201805
